FAERS Safety Report 24620509 (Version 1)
Quarter: 2024Q4

REPORT INFORMATION
  Report Type: Report from Study
  Country: GB (occurrence: GB)
  Receive Date: 20241114
  Receipt Date: 20241114
  Transmission Date: 20250115
  Serious: Yes (Hospitalization)
  Sender: SANDOZ
  Company Number: GB-002147023-NVSC2021GB280428

PATIENT
  Sex: Male

DRUGS (2)
  1. HYRIMOZ [Suspect]
     Active Substance: ADALIMUMAB-ADAZ
     Indication: Crohn^s disease
     Dosage: 40 MG, Q2W (ROUTE: AS DIRECTED),40MG/0.8ML
     Route: 065
     Dates: start: 20210426
  2. HYRIMOZ [Suspect]
     Active Substance: ADALIMUMAB-ADAZ
     Dosage: 40 MG, Q2W,40MG/0.4ML
     Route: 058

REACTIONS (3)
  - Illness [Not Recovered/Not Resolved]
  - Pain [Unknown]
  - Nausea [Unknown]
